FAERS Safety Report 10953644 (Version 1)
Quarter: 2015Q1

REPORT INFORMATION
  Report Type: Spontaneous
  Country: MX (occurrence: MX)
  Receive Date: 20150325
  Receipt Date: 20150325
  Transmission Date: 20150721
  Serious: Yes (Other)
  Sender: FDA-Public Use
  Company Number: MX-PFIZER INC-2015102168

PATIENT
  Sex: Female

DRUGS (7)
  1. AMITRIPTILINA LUAR [Concomitant]
     Indication: ANTIDEPRESSANT THERAPY
     Dosage: 25 MG, UNK
     Route: 048
  2. LYRICA [Suspect]
     Active Substance: PREGABALIN
     Indication: MULTIPLE SCLEROSIS
  3. CLONAZEPAM. [Concomitant]
     Active Substance: CLONAZEPAM
     Indication: SLEEP DISORDER
     Dosage: 2 MG, UNK
     Route: 048
  4. LYRICA [Suspect]
     Active Substance: PREGABALIN
     Indication: TRIGEMINAL NERVE DISORDER
     Dosage: 150 MG, 3X/DAY
     Route: 048
     Dates: start: 2001
  5. LEVOTHYROXINE [Concomitant]
     Active Substance: LEVOTHYROXINE
  6. GLATIRAMER ACETATE. [Concomitant]
     Active Substance: GLATIRAMER ACETATE
     Indication: NERVOUS SYSTEM DISORDER
     Dosage: UNK
  7. PROPANOLOL [Concomitant]
     Active Substance: PROPRANOLOL HYDROCHLORIDE
     Indication: TACHYCARDIA
     Dosage: 40 MG, UNK
     Route: 048

REACTIONS (11)
  - Hyperthyroidism [Not Recovered/Not Resolved]
  - Tooth disorder [Not Recovered/Not Resolved]
  - Neurogenic bladder [Not Recovered/Not Resolved]
  - Optic neuritis [Not Recovered/Not Resolved]
  - Movement disorder [Not Recovered/Not Resolved]
  - Colitis [Not Recovered/Not Resolved]
  - Diabetes mellitus [Not Recovered/Not Resolved]
  - Blood cholesterol [Not Recovered/Not Resolved]
  - Blood triglycerides [Not Recovered/Not Resolved]
  - Gastritis [Not Recovered/Not Resolved]
  - Swelling [Not Recovered/Not Resolved]

NARRATIVE: CASE EVENT DATE: 2001
